FAERS Safety Report 25239477 (Version 1)
Quarter: 2025Q2

REPORT INFORMATION
  Report Type: Spontaneous
  Country: US (occurrence: None)
  Receive Date: 20250424
  Receipt Date: 20250424
  Transmission Date: 20250716
  Serious: Yes (Death)
  Sender: FDA-CTU
  Company Number: None

PATIENT
  Age: 66 Year
  Sex: Male
  Weight: 77 kg

DRUGS (1)
  1. APIXABAN [Suspect]
     Active Substance: APIXABAN
     Dosage: FREQUENCY : TWICE A DAY;?
     Route: 048
     Dates: start: 20240216, end: 20241008

REACTIONS (6)
  - Haemorrhage [None]
  - Road traffic accident [None]
  - Cardiac arrest [None]
  - Shock haemorrhagic [None]
  - Suicidal ideation [None]
  - Pain [None]

NARRATIVE: CASE EVENT DATE: 20241008
